FAERS Safety Report 4976190-9 (Version None)
Quarter: 2006Q2

REPORT INFORMATION
  Report Type: 
  Country: None (occurrence: None)
  Receive Date: 20060419
  Receipt Date: 20060410
  Transmission Date: 20061013
  Serious: Yes (Hospitalization, Other)
  Sender: FDA-Public Use
  Company Number: US-JNJFOC-20060306624

PATIENT
  Sex: Female
  Weight: 95.26 kg

DRUGS (4)
  1. REMICADE [Suspect]
     Indication: RHEUMATOID ARTHRITIS
     Dosage: TOTAL FOUR DOSES
     Route: 042
  2. METHOTREXATE [Concomitant]
  3. PREDNISONE [Concomitant]
     Dosage: DOSE VARIES 5MG-20MG
  4. DAYPRO [Concomitant]

REACTIONS (2)
  - PERICARDIAL EFFUSION [None]
  - TUBERCULOSIS [None]
